FAERS Safety Report 21375721 (Version 3)
Quarter: 2023Q1

REPORT INFORMATION
  Report Type: Report from Study
  Country: US (occurrence: US)
  Receive Date: 20220926
  Receipt Date: 20230110
  Transmission Date: 20230418
  Serious: Yes (Other)
  Sender: FDA-Public Use
  Company Number: US-ABBVIE-4129547

PATIENT
  Age: 71 Year
  Sex: Male
  Weight: 82.1 kg

DRUGS (25)
  1. HUMIRA [Suspect]
     Active Substance: ADALIMUMAB
     Indication: Crohn^s disease
     Dosage: CITRATE FREE
     Route: 058
  2. HUMIRA [Suspect]
     Active Substance: ADALIMUMAB
  3. MONTELUKAST [Concomitant]
     Active Substance: MONTELUKAST SODIUM
     Indication: Seasonal allergy
     Dosage: TAKE 1 TABLET (10 MG TOTAL) BY MOUTH ONCE DAILY.
  4. PFIZER-BIONTECH COVID-19 VACCINE [Concomitant]
     Active Substance: TOZINAMERAN
     Indication: COVID-19 immunisation
     Route: 030
  5. PFIZER-BIONTECH COVID-19 VACCINE [Concomitant]
     Active Substance: TOZINAMERAN
     Indication: COVID-19 immunisation
     Dosage: BOOSTER
     Route: 030
  6. CYANOCOBALAMIN [Concomitant]
     Active Substance: CYANOCOBALAMIN
     Indication: Product used for unknown indication
     Dosage: TAKE 250 MCG BY MOUTH
     Route: 048
  7. TIMOLOL MALEATE [Concomitant]
     Active Substance: TIMOLOL MALEATE
     Indication: Product used for unknown indication
     Dosage: PLACE 1 DROP INTO BOTH EYES TWICE DAILY.
  8. METOPROLOL SUCCINATE [Concomitant]
     Active Substance: METOPROLOL SUCCINATE
     Indication: Hypertension
     Dosage: TAKE 1 TABLET (100 MG TOTAL) BY MOUTH ONCE DAILY
     Route: 048
  9. METOPROLOL SUCCINATE [Concomitant]
     Active Substance: METOPROLOL SUCCINATE
     Indication: Hypertension
     Dosage: TAKE 1 TABLET (100 MG TOTAL) BY MOUTH ONCE DAILY
     Route: 048
  10. HYDROCHLOROTHIAZIDE [Concomitant]
     Active Substance: HYDROCHLOROTHIAZIDE
     Indication: Hypertension
     Dosage: TAKE 1 CAPSULE (12.5 MG TOTAL) BY MOUTH ONCE DAILY
     Route: 048
  11. LATANOPROST [Concomitant]
     Active Substance: LATANOPROST
     Indication: Product used for unknown indication
     Dosage: PLACE 1 DROP INTO BOTH EYES ONCE DAILY.?0.005 % EYE DROPS
  12. ACETAMINOPHEN [Concomitant]
     Active Substance: ACETAMINOPHEN
     Indication: Pyrexia
     Dosage: TAKE 650 MG BY MOUTH EVERY 4 HOURS AS NEEDED FOR FEVER, HEADACHE OR PAIN?325 MG TABLET
     Route: 048
  13. CYCLOBENZAPRINE [Concomitant]
     Active Substance: CYCLOBENZAPRINE
     Indication: Product used for unknown indication
     Dosage: TAKE 5 MG BY MOUTH IN THE MORNING AND 5 MG IN THE EVENING. AS NEEDED ONLY.
     Route: 048
  14. OMEGA-3 FATTY ACIDS [Concomitant]
     Active Substance: OMEGA-3 FATTY ACIDS
     Indication: Product used for unknown indication
     Dosage: TAKE 2,000 MG BY MOUTH EVERY DAY.? 1,000 MG CAPSULE
     Route: 048
  15. BENAZEPRIL [Concomitant]
     Active Substance: BENAZEPRIL HYDROCHLORIDE
     Indication: Blood pressure measurement
     Dosage: 40 MG TABLET
     Route: 048
  16. Calcium carbonate Cholecalciferol; [Concomitant]
     Indication: Product used for unknown indication
     Dosage: 600-800 MG-UNITS
     Route: 048
  17. DICLOFENAC SODIUM [Concomitant]
     Active Substance: DICLOFENAC SODIUM
     Indication: Tendon rupture
     Dosage: APPLY 2-4 G TOPICALLY FOUR TIMES DAILY AS NEEDED? 1 % GEL
  18. SILDENAFIL [Concomitant]
     Active Substance: SILDENAFIL
     Indication: Product used for unknown indication
     Dosage: TAKE 1 TABLET (20 MG TOTAL) BY MOUTH ONCE DAILY AS NEEDED?20 MG TABLET
     Route: 048
  19. DORZOLAMIDE [Concomitant]
     Active Substance: DORZOLAMIDE
     Indication: Intraocular pressure increased
     Dosage: PLACE 1 DROP INTO BOTH EYES TWICE DAILY. INDICATIONS: INCREASED PRESSURE WITHIN EYE
  20. VITAMIN D3 [Concomitant]
     Active Substance: CHOLECALCIFEROL
     Indication: Product used for unknown indication
     Dosage: TAKE 4,000 UNITS BY MOUTH EVERY DAY .
     Route: 048
  21. VITAMIN D3 [Concomitant]
     Active Substance: CHOLECALCIFEROL
     Indication: Product used for unknown indication
     Dosage: TAKE 4,000 UNITS BY MOUTH EVERY DAY .
     Route: 048
  22. Humira Pen 40 mg/0.8 mL pen injector kit [Concomitant]
     Indication: Product used for unknown indication
     Dosage: INJECT 40 MG INTO THE SKIN EVERY OTHER WEEK
     Route: 058
  23. PANTOPRAZOLE [Concomitant]
     Active Substance: PANTOPRAZOLE
     Indication: Gastrooesophageal reflux disease
     Dosage: TAKE 1 TABLET (40 MG TOTAL) BY MOUTH EVERY MORNING BEFORE BREAKFAST.? (ENTERIC COATED) 40 MG TABLET
     Route: 048
  24. BRIMONIDINE [Concomitant]
     Active Substance: BRIMONIDINE TARTRATE
     Indication: Product used for unknown indication
     Dosage: PLACE 1 DROP INTO BOTH EYES THREE TIMES DAILY
  25. POTASSIUM CHLORIDE [Concomitant]
     Active Substance: POTASSIUM CHLORIDE
     Indication: Blood potassium decreased

REACTIONS (2)
  - Large intestine polyp [Recovered/Resolved]
  - Colitis [Not Recovered/Not Resolved]

NARRATIVE: CASE EVENT DATE: 20220901
